FAERS Safety Report 4780169-X (Version None)
Quarter: 2005Q3

REPORT INFORMATION
  Report Type: 
  Country: None (occurrence: None)
  Receive Date: 20050927
  Receipt Date: 20050912
  Transmission Date: 20060218
  Serious: Yes (Hospitalization)
  Sender: FDA-Public Use
  Company Number: US-MERCK-0509USA01593

PATIENT
  Age: 70 Year
  Sex: Female

DRUGS (10)
  1. ZOCOR [Suspect]
     Route: 048
     Dates: end: 20050802
  2. ZOCOR [Suspect]
     Route: 048
     Dates: start: 20050921
  3. GEMFIBROZIL [Suspect]
     Route: 065
     Dates: start: 20050101
  4. INSULIN, BIPHASIC ISOPHANE [INJECTION] [Concomitant]
     Route: 065
  5. METFORMIN [Concomitant]
     Route: 065
  6. GLIPIZIDE [Concomitant]
     Route: 065
  7. ACCUPRIL [Concomitant]
     Route: 065
  8. PREVACID [Concomitant]
     Route: 065
  9. ADVAIR DISKUS 100/50 [Concomitant]
     Route: 065
  10. DILTIAZEM HYDROCHLORIDE [Concomitant]
     Route: 065

REACTIONS (1)
  - MYOSITIS [None]
